FAERS Safety Report 16622202 (Version 2)
Quarter: 2019Q3

REPORT INFORMATION
  Report Type: Spontaneous
  Country: DE (occurrence: DE)
  Receive Date: 20190723
  Receipt Date: 20190806
  Transmission Date: 20191004
  Serious: Yes (Hospitalization, Other)
  Sender: FDA-Public Use
  Company Number: DE-009507513-1907DEU010048

PATIENT
  Age: 71 Year
  Sex: Male
  Weight: 68 kg

DRUGS (9)
  1. PRAVASIN [Suspect]
     Active Substance: PRAVASTATIN SODIUM
     Dosage: INTAKE IN THE LAST TWO YEARS
     Dates: end: 201904
  2. TAMSULOSIN HYDROCHLORIDE. [Concomitant]
     Active Substance: TAMSULOSIN HYDROCHLORIDE
     Dosage: SINCE CIRCA 10 YEARS EVERY SECOND DAY 1 TABLET
     Dates: start: 2009
  3. XUSAL [Concomitant]
     Active Substance: LEVOCETIRIZINE DIHYDROCHLORIDE
     Dosage: 1 TABLET DAILY SINCE CIRCA 10 YEARS
     Dates: start: 2009
  4. ASPIRIN PROTECT [Concomitant]
     Active Substance: ASPIRIN
     Indication: VASCULAR GRAFT
     Dosage: 1 TABLET DAILY
     Dates: start: 2003
  5. LISINOPRIL. [Suspect]
     Active Substance: LISINOPRIL
     Dosage: FOR A FEW WEEKS 2.5 MG ? 5 MG AS REQUIRED
     Dates: start: 2019
  6. PRAVASIN [Suspect]
     Active Substance: PRAVASTATIN SODIUM
     Indication: VASCULAR GRAFT
     Dosage: 10 MILLIGRAM
  7. PRAVASIN [Suspect]
     Active Substance: PRAVASTATIN SODIUM
     Dosage: 1 TABLET DAILY
     Dates: start: 2003
  8. LISINOPRIL. [Suspect]
     Active Substance: LISINOPRIL
     Indication: VASCULAR GRAFT
     Dosage: 5MG, QD
     Dates: start: 2003, end: 2019
  9. JODID [Concomitant]
     Active Substance: IODINE
     Dosage: 1 TABLET DAILY

REACTIONS (8)
  - Swelling face [Unknown]
  - Hypersensitivity [Unknown]
  - Pollakiuria [Unknown]
  - Dermatitis [Unknown]
  - Weight decreased [Unknown]
  - Adverse reaction [Unknown]
  - Blood pressure fluctuation [Unknown]
  - Chills [Unknown]
